FAERS Safety Report 24609341 (Version 1)
Quarter: 2024Q4

REPORT INFORMATION
  Report Type: Spontaneous
  Country: JP (occurrence: JP)
  Receive Date: 20241112
  Receipt Date: 20241112
  Transmission Date: 20250115
  Serious: Yes (Hospitalization)
  Sender: DAIICHI
  Company Number: JP-DSJP-DS-2024-107439-JP

PATIENT
  Age: 72 Year
  Sex: Male
  Weight: 51.8 kg

DRUGS (1)
  1. EDOXABAN TOSYLATE [Suspect]
     Active Substance: EDOXABAN TOSYLATE
     Indication: Atrial fibrillation
     Dosage: 15 MG, QD
     Route: 048

REACTIONS (3)
  - Embolic cerebral infarction [Unknown]
  - Haemorrhagic infarction [Unknown]
  - Prescribed underdose [Unknown]
